FAERS Safety Report 6275371-4 (Version None)
Quarter: 2009Q3

REPORT INFORMATION
  Report Type: 
  Country: None (occurrence: None)
  Receive Date: 20090721
  Receipt Date: 20090713
  Transmission Date: 20100115
  Serious: Yes (Disabling)
  Sender: FDA-Public Use
  Company Number: US-BAYER-200912158BCC

PATIENT
  Sex: Male

DRUGS (2)
  1. ALEVE [Suspect]
     Indication: ARTHRALGIA
     Dosage: TOTAL DAILY DOSE: 440 MG  UNIT DOSE: 220 MG
     Route: 048
     Dates: end: 20090709
  2. ASPIRIN [Concomitant]
     Route: 065

REACTIONS (3)
  - BODY TEMPERATURE INCREASED [None]
  - MOBILITY DECREASED [None]
  - PAIN [None]
